FAERS Safety Report 12451176 (Version 1)
Quarter: 2016Q2

REPORT INFORMATION
  Report Type: Spontaneous
  Country: CA (occurrence: CA)
  Receive Date: 20160609
  Receipt Date: 20160609
  Transmission Date: 20160815
  Serious: Yes (Hospitalization, Other)
  Sender: FDA-Public Use
  Company Number: CA-PFIZER INC-2016290457

PATIENT
  Age: 41 Year
  Sex: Male

DRUGS (14)
  1. CELEXA [Concomitant]
     Active Substance: CITALOPRAM HYDROBROMIDE
     Dosage: 40 MG, 1X/DAY
  2. VENTOLIN [Concomitant]
     Active Substance: ALBUTEROL SULFATE
     Indication: ASTHMA
     Dosage: UNK, AS NEEDED
  3. FOLIC ACID. [Concomitant]
     Active Substance: FOLIC ACID
     Dosage: 5 MG, WEEKLY
  4. ADVAIR HFA [Concomitant]
     Active Substance: FLUTICASONE PROPIONATE\SALMETEROL XINAFOATE
     Indication: ASTHMA
     Dosage: UNK, 2X/DAY
  5. PREDNISONE. [Concomitant]
     Active Substance: PREDNISONE
     Dosage: 40 MG, UNK
     Route: 048
     Dates: start: 2014
  6. METHOTREXATE [Concomitant]
     Active Substance: METHOTREXATE
     Dosage: 25 MG, WEEKLY
     Route: 048
  7. FIXMYSKIN HEALING BALM VANILLA FRAGRANCE [Concomitant]
     Active Substance: HYDROCORTISONE
     Dosage: 10 MG, 2X/DAY
  8. PREDNISONE. [Concomitant]
     Active Substance: PREDNISONE
     Dosage: 40 MG, UNK
     Route: 048
     Dates: start: 20160414
  9. HUMIRA [Concomitant]
     Active Substance: ADALIMUMAB
     Dosage: 80 MG, WEEKLY
     Dates: start: 201512
  10. TECTA [Suspect]
     Active Substance: PANTOPRAZOLE MAGNESIUM
     Dosage: 40 MG, ONE TO TWO TIMES A DAY
     Dates: start: 201410
  11. SOLU-MEDROL [Suspect]
     Active Substance: METHYLPREDNISOLONE SODIUM SUCCINATE
     Dosage: 80 MG, 2X/DAY
     Route: 042
     Dates: start: 201410
  12. CALCIUM +VIT D [Concomitant]
     Active Substance: CALCIUM\VITAMIN D
  13. PREDNISONE. [Concomitant]
     Active Substance: PREDNISONE
     Dosage: 40 MG, UNK
     Route: 048
     Dates: start: 2010
  14. PREDNISONE. [Concomitant]
     Active Substance: PREDNISONE
     Dosage: 50 MG, UNK
     Route: 048
     Dates: end: 201601

REACTIONS (11)
  - Colitis ulcerative [Unknown]
  - Dyspnoea [Unknown]
  - Anal fistula [Unknown]
  - Arthralgia [Not Recovered/Not Resolved]
  - Anxiety [Unknown]
  - Rectal discharge [Not Recovered/Not Resolved]
  - Rectal haemorrhage [Not Recovered/Not Resolved]
  - Inflammatory bowel disease [Unknown]
  - Crohn^s disease [Not Recovered/Not Resolved]
  - Depressive symptom [Unknown]
  - Septic shock [Unknown]

NARRATIVE: CASE EVENT DATE: 201410
